FAERS Safety Report 19954588 (Version 1)
Quarter: 2021Q4

REPORT INFORMATION
  Report Type: Spontaneous
  Country: US (occurrence: US)
  Receive Date: 20211013
  Receipt Date: 20211013
  Transmission Date: 20220303
  Serious: No
  Sender: FDA-Public Use
  Company Number: None

PATIENT
  Age: 49 Year
  Sex: Female

DRUGS (2)
  1. HUMIRA [Suspect]
     Active Substance: ADALIMUMAB
     Indication: Psoriatic arthropathy
     Dates: start: 20200513
  2. Balsalzide [Concomitant]
     Dates: start: 20040101

REACTIONS (2)
  - Influenza like illness [None]
  - Therapy interrupted [None]

NARRATIVE: CASE EVENT DATE: 20211006
